FAERS Safety Report 6991356-4 (Version None)
Quarter: 2010Q3

REPORT INFORMATION
  Report Type: 
  Country: None (occurrence: None)
  Receive Date: 20100916
  Receipt Date: 20090730
  Transmission Date: 20110219
  Serious: Yes (Other)
  Sender: FDA-Public Use
  Company Number: US-WYE-H10423909

PATIENT
  Age: 64 Year
  Sex: Female
  Weight: 49.94 kg

DRUGS (15)
  1. TORISEL [Suspect]
     Indication: METASTATIC RENAL CELL CARCINOMA
     Route: 042
     Dates: start: 20090507, end: 20090715
  2. VERAPAMIL HYDROCHLORIDE [Concomitant]
     Route: 048
  3. FUROSEMIDE [Concomitant]
     Route: 048
  4. ADVAIR DISKUS 100/50 [Concomitant]
     Dosage: 500/50 MCG/DOSE BID
     Route: 055
  5. DUONEB [Concomitant]
     Route: 055
  6. ASPIRIN [Concomitant]
     Route: 048
  7. VICODIN [Concomitant]
     Dosage: 5-500 MG TABLET AS DIRECTED
     Route: 048
  8. BENADRYL [Concomitant]
     Route: 042
     Dates: start: 20090101, end: 20090101
  9. ZOFRAN [Concomitant]
     Dosage: 100 ML
  10. PROCHLORPERAZINE MALEATE [Concomitant]
     Dosage: 10 MG AS DIRECTED
     Route: 048
  11. ARANESP [Concomitant]
     Dosage: 500 MCG, Q3WEEKS FOR 3 DOSES
     Route: 042
     Dates: start: 20090507
  12. AREDIA [Concomitant]
     Dosage: 60 MG DAILY OVER 2 HOURS FOR 1 DAY IN NS 250ML
     Route: 042
     Dates: start: 20090101, end: 20090101
  13. LISINOPRIL [Concomitant]
     Dosage: 0.5 (10MG) DAILY
     Route: 048
  14. SODIUM CHLORIDE [Concomitant]
     Dosage: 1000ML (0.9%) DAILY OVER 2 HOURS DAY 1
     Route: 042
     Dates: start: 20090101
  15. FERROUS SULFATE [Concomitant]
     Route: 048

REACTIONS (2)
  - BLOOD CREATININE INCREASED [None]
  - TREMOR [None]
